FAERS Safety Report 9307050 (Version 3)
Quarter: 2013Q3

REPORT INFORMATION
  Report Type: Spontaneous
  Country: AU (occurrence: AU)
  Receive Date: 20130523
  Receipt Date: 20130712
  Transmission Date: 20140515
  Serious: Yes (Death, Hospitalization)
  Sender: FDA-Public Use
  Company Number: AU-B.I. PHARMACEUTICALS,INC./RIDGEFIELD-2013-AU-00615AU

PATIENT
  Age: 83 Year
  Sex: Male
  Weight: 50 kg

DRUGS (13)
  1. PRADAXA [Suspect]
     Indication: CEREBROVASCULAR ACCIDENT PROPHYLAXIS
     Dosage: 220 MG
     Dates: start: 20110704
  2. PRADAXA [Suspect]
     Indication: ATRIAL FIBRILLATION
  3. ACTONEL COMBI EC [Concomitant]
     Indication: OSTEOPOROTIC FRACTURE
     Dosage: 35 + 1.25 MG
  4. CODALGIN FORTE [Concomitant]
     Indication: PAIN
     Dosage: 500 MG/ 30 MG
  5. LIPITOR [Concomitant]
     Indication: HYPERLIPIDAEMIA
     Dosage: 20 MG
  6. LOFENOXAL [Concomitant]
     Indication: GASTROENTERITIS RADIATION
     Dosage: 2.5 MG/ 25 MCG
  7. NITROLINGUAL PUMPSPRAY [Concomitant]
     Indication: MYOCARDIAL ISCHAEMIA
     Dosage: 400 MCG/DOSE
  8. POLY-TEARS [Concomitant]
     Indication: DRY EYE
     Dosage: 0.3%/ 0.1%
     Route: 047
  9. SERETIDE MDI [Concomitant]
     Indication: EMPHYSEMA
     Dosage: 250MCG-25MCG/DOSE
     Route: 055
  10. SOMAC EC [Concomitant]
     Indication: GASTROOESOPHAGEAL REFLUX DISEASE
     Dosage: 20 MG
  11. SPIRIVA [Concomitant]
     Indication: EMPHYSEMA
     Dosage: 18 MCG
  12. SPIRONOLACTONE [Concomitant]
     Indication: COR PULMONALE
     Dosage: 25 MG
  13. ZOLOFT [Concomitant]
     Indication: DEPRESSION
     Dosage: 50 MG

REACTIONS (4)
  - Lower respiratory tract infection [Fatal]
  - Delirium [Unknown]
  - Sepsis [Unknown]
  - Chronic obstructive pulmonary disease [Unknown]
